FAERS Safety Report 23483103 (Version 1)
Quarter: 2024Q1

REPORT INFORMATION
  Report Type: Spontaneous
  Country: US (occurrence: US)
  Receive Date: 20240205
  Receipt Date: 20240205
  Transmission Date: 20240410
  Serious: Yes (Hospitalization)
  Sender: FDA-Public Use
  Company Number: US-PFIZER INC-202300269187

PATIENT
  Age: 44 Year
  Sex: Female

DRUGS (2)
  1. OXBRYTA [Suspect]
     Active Substance: VOXELOTOR
     Dosage: 3 TABLETS BY MOUTH ONCE DAILY
     Route: 048
  2. OXBRYTA [Suspect]
     Active Substance: VOXELOTOR
     Dosage: 3 TABLETS BY MOUTH ONCE DAILY
     Route: 048
     Dates: end: 20230709

REACTIONS (1)
  - Pain [Unknown]
